FAERS Safety Report 8499293-3 (Version None)
Quarter: 2012Q3

REPORT INFORMATION
  Report Type: 
  Country: None (occurrence: None)
  Receive Date: 20120710
  Receipt Date: 20120705
  Transmission Date: 20120928
  Serious: Yes (Other)
  Sender: FDA-Public Use
  Company Number: PHHY2012IL042200

PATIENT
  Age: 40 Year
  Sex: Female

DRUGS (3)
  1. BEVACIZUMAB [Concomitant]
  2. CAPECITABINE [Concomitant]
  3. ZOMETA [Suspect]
     Indication: BREAST CANCER
     Dosage: 4 MG, UNK
     Route: 042

REACTIONS (1)
  - OSTEONECROSIS OF JAW [None]
